FAERS Safety Report 4768130-2 (Version None)
Quarter: 2005Q3

REPORT INFORMATION
  Report Type: 
  Country: None (occurrence: None)
  Receive Date: 20050914
  Receipt Date: 20050901
  Transmission Date: 20060218
  Serious: Yes (Other)
  Sender: FDA-Public Use
  Company Number: PHBS2005DE13349

PATIENT
  Age: 55 Year
  Sex: Female

DRUGS (1)
  1. PAMIDRONATE DISODIUM [Suspect]
     Indication: MULTIPLE MYELOMA
     Route: 042
     Dates: start: 20000101

REACTIONS (9)
  - ASEPTIC NECROSIS BONE [None]
  - CYST [None]
  - DENTAL OPERATION [None]
  - FISTULA [None]
  - IMPAIRED HEALING [None]
  - OSTEOTOMY [None]
  - PAIN IN JAW [None]
  - TOOTH EXTRACTION [None]
  - WOUND DEHISCENCE [None]
